FAERS Safety Report 22282431 (Version 2)
Quarter: 2023Q2

REPORT INFORMATION
  Report Type: Report from Study
  Country: US (occurrence: US)
  Receive Date: 20230504
  Receipt Date: 20230607
  Transmission Date: 20230722
  Serious: No
  Sender: FDA-Public Use
  Company Number: US-002147023-NVSC2023US099252

PATIENT
  Sex: Male
  Weight: 107.5 kg

DRUGS (8)
  1. METHOTREXATE [Suspect]
     Active Substance: METHOTREXATE
     Indication: Psoriasis
     Dosage: 150 MG, QW
     Route: 065
  2. ATORVASTATIN [Suspect]
     Active Substance: ATORVASTATIN
     Indication: Psoriasis
     Dosage: 20 MG, QD
     Route: 048
  3. COSENTYX [Suspect]
     Active Substance: SECUKINUMAB
     Indication: Psoriasis
     Dosage: 300 MG
     Route: 065
  4. KETOCONAZOLE [Suspect]
     Active Substance: KETOCONAZOLE
     Indication: Psoriasis
     Dosage: 2 %
     Route: 065
  5. CYCLOBENZAPRINE [Suspect]
     Active Substance: CYCLOBENZAPRINE
     Indication: Psoriasis
     Dosage: 10 MG, TID
     Route: 065
  6. FOLIC ACID [Suspect]
     Active Substance: FOLIC ACID
     Indication: Psoriasis
     Dosage: 1 MG (TAKE ON DAYS NOT TAKING MTX)
     Route: 065
  7. LEVOTHYROXINE [Suspect]
     Active Substance: LEVOTHYROXINE
     Indication: Psoriasis
     Dosage: 150 UG, QD
     Route: 065
  8. SERTRALINE [Suspect]
     Active Substance: SERTRALINE HYDROCHLORIDE
     Indication: Psoriasis
     Dosage: UNK  (TAKE 1 1/2 50 MG TABS DAILY)
     Route: 065

REACTIONS (11)
  - Pruritus [Recovering/Resolving]
  - Psoriasis [Unknown]
  - Skin abrasion [Unknown]
  - Arthralgia [Recovering/Resolving]
  - Skin papilloma [Recovering/Resolving]
  - Skin weeping [Unknown]
  - Skin exfoliation [Unknown]
  - Tenderness [Unknown]
  - Product use in unapproved indication [Unknown]
  - Treatment failure [Unknown]
  - Therapeutic product effect incomplete [Unknown]
